FAERS Safety Report 5535861-6 (Version None)
Quarter: 2007Q4

REPORT INFORMATION
  Report Type: 
  Country: None (occurrence: None)
  Receive Date: 20071206
  Receipt Date: 20071126
  Transmission Date: 20080405
  Serious: Yes (Other)
  Sender: FDA-Public Use
  Company Number: JP-JNJFOC-20071110633

PATIENT
  Age: 81 Year
  Sex: Male

DRUGS (3)
  1. DUROTEP [Suspect]
     Indication: DRUG USE FOR UNKNOWN INDICATION
     Route: 062
  2. HALOPERIDOL [Concomitant]
     Indication: DELIRIUM
     Route: 065
  3. MIDAZOLAM HCL [Concomitant]
     Indication: DELIRIUM
     Route: 042

REACTIONS (1)
  - DELIRIUM [None]
